FAERS Safety Report 6603725-2 (Version None)
Quarter: 2010Q1

REPORT INFORMATION
  Report Type: 
  Country: None (occurrence: None)
  Receive Date: 20100226
  Receipt Date: 20090106
  Transmission Date: 20100710
  Serious: No
  Sender: FDA-Public Use
  Company Number: A0762515A

PATIENT
  Age: 52 Year
  Sex: Male

DRUGS (3)
  1. LAMICTAL CD [Suspect]
     Indication: BIPOLAR DISORDER
     Dosage: 150MG PER DAY
     Route: 048
     Dates: start: 20081120, end: 20081224
  2. CYMBALTA [Concomitant]
  3. TRAZODONE HCL [Concomitant]

REACTIONS (7)
  - HEADACHE [None]
  - MALAISE [None]
  - MYALGIA [None]
  - NAUSEA [None]
  - RASH [None]
  - VISION BLURRED [None]
  - WITHDRAWAL SYNDROME [None]
